FAERS Safety Report 24002075 (Version 1)
Quarter: 2024Q2

REPORT INFORMATION
  Report Type: Report from Study
  Country: CA (occurrence: CA)
  Receive Date: 20240622
  Receipt Date: 20240622
  Transmission Date: 20240715
  Serious: Yes (Other)
  Sender: FDA-Public Use
  Company Number: CA-ABBVIE-5806722

PATIENT
  Age: 40 Year
  Sex: Male
  Weight: 67 kg

DRUGS (1)
  1. SKYRIZI [Suspect]
     Active Substance: RISANKIZUMAB-RZAA
     Indication: Crohn^s disease
     Route: 058
     Dates: start: 20230126

REACTIONS (7)
  - Fistula [Unknown]
  - Feeling abnormal [Unknown]
  - Abdominal pain [Unknown]
  - Arthralgia [Unknown]
  - Rash pruritic [Unknown]
  - Ostomy bag placement [Unknown]
  - Scar [Unknown]

NARRATIVE: CASE EVENT DATE: 20230101
